FAERS Safety Report 4694824-3 (Version None)
Quarter: 2005Q2

REPORT INFORMATION
  Report Type: 
  Country: None (occurrence: None)
  Receive Date: 20050617
  Receipt Date: 20050610
  Transmission Date: 20051028
  Serious: Yes (Death, Hospitalization)
  Sender: FDA-Public Use
  Company Number: US-2005-006976

PATIENT
  Age: 65 Year
  Sex: Male

DRUGS (22)
  1. BETASERON [Suspect]
     Indication: SECONDARY PROGRESSIVE MULTIPLE SCLEROSIS
     Dosage: SUBCUTANEOUS
     Route: 058
     Dates: start: 19940325, end: 20050329
  2. ARICEPT [Concomitant]
  3. ASPIRIN [Concomitant]
  4. ANAFRANIL [Concomitant]
  5. COREG [Concomitant]
  6. LANOXIN [Concomitant]
  7. COLACE (DOCUSATE SODIUM) [Concomitant]
  8. ENULOSE [Concomitant]
  9. LAXATIVES [Concomitant]
  10. LASIX [Concomitant]
  11. GLUCOTROL XL [Concomitant]
  12. LANTUS [Concomitant]
  13. LIPITOR [Concomitant]
  14. LISINOPRIL [Concomitant]
  15. MULTIVITAMINS (PANTHENOL, RETINOL) [Concomitant]
  16. MACRODANTIN [Concomitant]
  17. NORVASC [Concomitant]
  18. PAXIL [Concomitant]
  19. POTASSIUM CHLORIDE [Concomitant]
  20. PRECOSE [Concomitant]
  21. NEXIUM [Concomitant]
  22. ALDACTONE [Concomitant]

REACTIONS (2)
  - COLLAPSE OF LUNG [None]
  - LUNG NEOPLASM MALIGNANT [None]
